FAERS Safety Report 7873211-0 (Version None)
Quarter: 2011Q4

REPORT INFORMATION
  Report Type: 
  Country: None (occurrence: None)
  Receive Date: 20111030
  Receipt Date: 20110502
  Transmission Date: 20120403
  Serious: No
  Sender: FDA-Public Use
  Company Number: US-AMGEN-USASP2011019632

PATIENT
  Age: 51 Year
  Sex: Female

DRUGS (2)
  1. ENBREL [Suspect]
     Indication: RHEUMATOID ARTHRITIS
     Dosage: 50 MG, QWK
     Dates: start: 20110301
  2. ENBREL [Suspect]
     Dates: start: 20110205

REACTIONS (12)
  - NAUSEA [None]
  - INJECTION SITE PRURITUS [None]
  - GAIT DISTURBANCE [None]
  - MALAISE [None]
  - ABDOMINAL PAIN UPPER [None]
  - DIARRHOEA [None]
  - TREMOR [None]
  - FEELING OF BODY TEMPERATURE CHANGE [None]
  - INJECTION SITE ERYTHEMA [None]
  - ASTHENIA [None]
  - WEIGHT DECREASED [None]
  - INJECTION SITE WARMTH [None]
